FAERS Safety Report 21987771 (Version 1)
Quarter: 2023Q1

REPORT INFORMATION
  Report Type: Other
  Country: IT (occurrence: IT)
  Receive Date: 20230214
  Receipt Date: 20230214
  Transmission Date: 20230418
  Serious: Yes (Hospitalization, Other)
  Sender: FDA-Public Use
  Company Number: IT-CELLTRION INC.-2023IT002785

PATIENT

DRUGS (10)
  1. RITUXIMAB [Suspect]
     Active Substance: RITUXIMAB
     Indication: Diffuse large B-cell lymphoma
     Dosage: UNK UNK, CYCLIC (SECOND CYCLE ON 01-SEP-2022 TO 27-SEP-2022)
     Route: 042
     Dates: start: 20211231, end: 20220426
  2. CISPLATIN [Suspect]
     Active Substance: CISPLATIN
     Indication: Diffuse large B-cell lymphoma
     Dosage: UNK UNK, UNKNOWN FREQ
     Dates: start: 20220901, end: 20220927
  3. POLATUZUMAB VEDOTIN [Suspect]
     Active Substance: POLATUZUMAB VEDOTIN
     Indication: Diffuse large B-cell lymphoma
     Dosage: UNK UNK, UNKNOWN FREQ
     Dates: start: 20221025, end: 20221027
  4. PREDNISONE [Suspect]
     Active Substance: PREDNISONE
     Indication: Diffuse large B-cell lymphoma
     Dosage: UNK UNK, UNKNOWN FREQ
     Dates: start: 20211231, end: 20220426
  5. DEXAMETHASONE [Suspect]
     Active Substance: DEXAMETHASONE
     Indication: Diffuse large B-cell lymphoma
     Dosage: UNK UNK, UNKNOWN FREQ
     Dates: start: 20220901, end: 20220927
  6. CYCLOPHOSPHAMIDE [Suspect]
     Active Substance: CYCLOPHOSPHAMIDE
     Indication: Diffuse large B-cell lymphoma
     Dosage: UNK UNK, UNKNOWN FREQ
     Dates: start: 20211231, end: 20220426
  7. CYTARABINE [Suspect]
     Active Substance: CYTARABINE
     Indication: Diffuse large B-cell lymphoma
     Dosage: UNK UNK, UNKNOWN FREQ
     Dates: start: 20220901, end: 20220927
  8. DOXORUBICIN [Suspect]
     Active Substance: DOXORUBICIN
     Indication: Diffuse large B-cell lymphoma
     Dosage: UNK UNK, UNKNOWN FREQ
     Dates: start: 20211231, end: 20220426
  9. VINCRISTINE [Suspect]
     Active Substance: VINCRISTINE
     Indication: Diffuse large B-cell lymphoma
     Dosage: UNK UNK, UNKNOWN FREQ
     Dates: start: 20211231, end: 20220426
  10. BENDAMUSTINE HYDROCHLORIDE [Suspect]
     Active Substance: BENDAMUSTINE HYDROCHLORIDE
     Indication: Diffuse large B-cell lymphoma
     Dosage: UNK UNK, CYCLIC
     Route: 042
     Dates: start: 20221025, end: 20221027

REACTIONS (2)
  - Diffuse large B-cell lymphoma [Unknown]
  - Cytokine release syndrome [Unknown]
